FAERS Safety Report 8917313 (Version 2)
Quarter: 2012Q4

REPORT INFORMATION
  Report Type: 
  Country: US (occurrence: US)
  Receive Date: 20121119
  Receipt Date: 20121213
  Transmission Date: 20130627
  Serious: Yes (Hospitalization)
  Sender: FDA-Public Use
  Company Number: US-B.I. PHARMACEUTICALS,INC./RIDGEFIELD-2012-BI-00207BP

PATIENT
  Age: 68 None
  Sex: Male
  Weight: 130.63 kg

DRUGS (9)
  1. PRADAXA [Suspect]
     Indication: ATRIAL FIBRILLATION
     Dosage: 300 mg
     Route: 048
     Dates: start: 20110420
  2. LIPITOR [Concomitant]
     Indication: BLOOD CHOLESTEROL INCREASED
     Dosage: 20 mg
  3. AVODART [Concomitant]
     Indication: BENIGN PROSTATIC HYPERPLASIA
     Dosage: 0.5 mg
  4. AMIODARONE [Concomitant]
     Dosage: 400 mg
  5. NOVOLOG 70/30 [Concomitant]
     Indication: DIABETES MELLITUS
     Dosage: 40 U
  6. NOVOLOG 70/30 [Concomitant]
     Dosage: 30 U
  7. METFORMIN [Concomitant]
     Indication: DIABETES MELLITUS
     Dosage: 1000 mg
  8. FUROSEMIDE [Concomitant]
     Indication: OEDEMA
     Dosage: 80 mg
  9. LISINOPRIL HCT [Concomitant]
     Indication: OEDEMA

REACTIONS (5)
  - Gastrointestinal haemorrhage [Unknown]
  - Diverticulum intestinal [Unknown]
  - Anaemia [Unknown]
  - Fatigue [Unknown]
  - Renal impairment [Unknown]
